FAERS Safety Report 8017547-1 (Version None)
Quarter: 2011Q4

REPORT INFORMATION
  Report Type: 
  Country: None (occurrence: None)
  Receive Date: 20111228
  Receipt Date: 20111214
  Transmission Date: 20120403
  Serious: Yes (Hospitalization, Other)
  Sender: FDA-Public Use
  Company Number: 2011P1014298

PATIENT
  Age: 37 Year
  Sex: Male

DRUGS (5)
  1. NIFEDIPINE ER UNKNOWN - UNKNOWN [Concomitant]
  2. MULTIVITAMINS UNKNOWN - UNKNOWN [Concomitant]
  3. METOPROLOL UNKNOWN - UNKNOWN [Concomitant]
  4. WARFARIN SODIUM [Suspect]
     Indication: ANTICOAGULANT THERAPY
     Dosage: 5 MG;QD;PO
     Route: 048
     Dates: start: 20070101
  5. CALCIUM ACETATE UNKNOWN - UNKNOWN [Concomitant]

REACTIONS (12)
  - SKIN NECROSIS [None]
  - BLOOD ALBUMIN DECREASED [None]
  - CALCIPHYLAXIS [None]
  - PULMONARY CALCIFICATION [None]
  - BLOOD ALKALINE PHOSPHATASE INCREASED [None]
  - BLOOD UREA INCREASED [None]
  - HYPERPARATHYROIDISM SECONDARY [None]
  - CELLULITIS [None]
  - CALCIFICATION METASTATIC [None]
  - BLOOD CREATININE INCREASED [None]
  - PULMONARY OEDEMA [None]
  - REFUSAL OF TREATMENT BY PATIENT [None]
